FAERS Safety Report 4316407-7 (Version None)
Quarter: 2004Q1

REPORT INFORMATION
  Report Type: 
  Country: None (occurrence: None)
  Receive Date: 20040312
  Receipt Date: 20040220
  Transmission Date: 20041129
  Serious: Yes (Hospitalization, Disabling, Other)
  Sender: FDA-Public Use
  Company Number: PHEH2004US02201

PATIENT
  Age: 57 Year
  Sex: Female
  Weight: 96 kg

DRUGS (13)
  1. ZOMETA [Suspect]
     Indication: METASTASES TO BONE
     Dosage: 4 MG EVERY 28 DAYS
     Route: 042
     Dates: start: 20011016, end: 20031103
  2. CHEMOTHERAPEUTICS,OTHER [Concomitant]
  3. CIPROFLOXACIN [Concomitant]
  4. SYNTHROID [Concomitant]
  5. EFFEXOR [Concomitant]
  6. WELLBUTRIN [Concomitant]
  7. PREVACID [Concomitant]
  8. PHENERGAN [Concomitant]
  9. ZOFRAN [Concomitant]
  10. CELEBREX [Concomitant]
  11. ALBUTEROL [Concomitant]
  12. AREDIA [Suspect]
     Indication: METASTASES TO BONE
     Dosage: 90 MG, EVERY 28 DAYS
     Route: 042
     Dates: start: 20001101, end: 20010801
  13. ZOLOFT [Concomitant]

REACTIONS (20)
  - ANXIETY [None]
  - ARTHRALGIA [None]
  - CANDIDIASIS [None]
  - DYSSTASIA [None]
  - FALL [None]
  - GAIT DISTURBANCE [None]
  - LIP ULCERATION [None]
  - MOUTH ULCERATION [None]
  - MUCOSAL INFLAMMATION [None]
  - NAUSEA [None]
  - OSTEOMYELITIS [None]
  - OSTEONECROSIS [None]
  - PAIN IN JAW [None]
  - SUPERINFECTION [None]
  - SURGERY [None]
  - SURGICAL PROCEDURE REPEATED [None]
  - SWELLING [None]
  - SWELLING FACE [None]
  - THERAPEUTIC RESPONSE DECREASED [None]
  - TOOTH DISORDER [None]
